FAERS Safety Report 6760766-2 (Version None)
Quarter: 2010Q2

REPORT INFORMATION
  Report Type: 
  Country: None (occurrence: None)
  Receive Date: 20100608
  Receipt Date: 20100527
  Transmission Date: 20101027
  Serious: Yes (Other)
  Sender: FDA-Public Use
  Company Number: US-PFIZER INC-2010068516

PATIENT
  Sex: Female
  Weight: 81.633 kg

DRUGS (11)
  1. ZOLOFT [Suspect]
     Dosage: 37.5 MG
  2. VENLAFAXINE [Suspect]
     Indication: HOT FLUSH
     Dosage: 37.5 MG
     Dates: start: 20100520, end: 20100520
  3. ESTROGEL [Concomitant]
  4. PROGESTERONE [Concomitant]
  5. AMLODIPINE/OLMESARTAN MEDOXOMIL [Concomitant]
     Indication: BLOOD PRESSURE
  6. MULTIPLE VITAMINS [Concomitant]
  7. FISH OIL [Concomitant]
  8. VITAMIN D [Concomitant]
  9. VITAMIN C [Concomitant]
  10. VOLTAREN [Concomitant]
  11. PRILOSEC [Concomitant]

REACTIONS (26)
  - ABDOMINAL PAIN UPPER [None]
  - DEFAECATION URGENCY [None]
  - DEPRESSED MOOD [None]
  - DIARRHOEA [None]
  - DIZZINESS [None]
  - DRUG EFFECT INCREASED [None]
  - DRY MOUTH [None]
  - EPSTEIN-BARR VIRUS INFECTION [None]
  - EUPHORIC MOOD [None]
  - FEELING ABNORMAL [None]
  - HEADACHE [None]
  - HYPOVENTILATION [None]
  - INSOMNIA [None]
  - LETHARGY [None]
  - LYMPHADENOPATHY [None]
  - MALAISE [None]
  - NAUSEA [None]
  - PHARYNGEAL OEDEMA [None]
  - POLLAKIURIA [None]
  - PSYCHOMOTOR HYPERACTIVITY [None]
  - PUPILLARY DISORDER [None]
  - SELF INJURIOUS BEHAVIOUR [None]
  - SENSORY DISTURBANCE [None]
  - SINUS DISORDER [None]
  - SWOLLEN TONGUE [None]
  - VOMITING [None]
